FAERS Safety Report 15154160 (Version 1)
Quarter: 2018Q3

REPORT INFORMATION
  Report Type: Spontaneous
  Country: BE (occurrence: BE)
  Receive Date: 20180717
  Receipt Date: 20180717
  Transmission Date: 20181010
  Serious: Yes (Other)
  Sender: FDA-Public Use
  Company Number: BE-PFIZER INC-2018284429

PATIENT
  Sex: Male

DRUGS (2)
  1. SPIDIFEN [Concomitant]
     Route: 048
  2. IBUPROFEN. [Suspect]
     Active Substance: IBUPROFEN
     Dosage: 1 DF, SINGLE
     Route: 048

REACTIONS (1)
  - Localised oedema [Unknown]
